FAERS Safety Report 7217797-8 (Version None)
Quarter: 2011Q1

REPORT INFORMATION
  Report Type: 
  Country: None (occurrence: None)
  Receive Date: 20110110
  Receipt Date: 20101228
  Transmission Date: 20110831
  Serious: Yes (Hospitalization, Other)
  Sender: FDA-Public Use
  Company Number: US-ASTRAZENECA-2009SE33162

PATIENT
  Age: 744 Month
  Sex: Female
  Weight: 106.1 kg

DRUGS (19)
  1. CRESTOR [Suspect]
     Route: 048
     Dates: start: 20100101
  2. VENTOLIN [Concomitant]
  3. ATENOLOL [Concomitant]
     Indication: HYPERTENSION
     Route: 048
  4. LISINOPRIL AND HYDROCHLOROTHIAZIDE [Concomitant]
     Indication: HYPERTENSION
     Dosage: 10/12.5 MG
     Route: 048
  5. PREDNISONE [Concomitant]
  6. ELAVIL [Concomitant]
     Route: 048
  7. ACIDOPHILOUS [Concomitant]
  8. XYZAL [Concomitant]
  9. XANAX [Concomitant]
     Route: 048
  10. ZYRTEC (GENERIC) [Concomitant]
  11. ASPIRIN [Concomitant]
     Route: 048
  12. NEXIUM [Suspect]
     Route: 048
  13. XANAX [Concomitant]
     Route: 048
  14. SYMBICORT [Suspect]
     Indication: ASTHMA
     Dosage: 80/4.5 UG
     Route: 055
     Dates: start: 20091204, end: 20091221
  15. SYMBICORT [Suspect]
     Dosage: 160/4.5 UG
     Route: 055
     Dates: start: 20100701
  16. CRESTOR [Suspect]
     Route: 048
     Dates: start: 20091201
  17. PRILOSEC OTC [Suspect]
     Route: 048
  18. NEXIUM [Suspect]
     Indication: GASTROOESOPHAGEAL REFLUX DISEASE
     Route: 048
     Dates: start: 20010101
  19. OMNARIS [Concomitant]

REACTIONS (16)
  - EMBOLIC STROKE [None]
  - DYSPHONIA [None]
  - INSOMNIA [None]
  - ANAEMIA [None]
  - FLATULENCE [None]
  - INCORRECT DOSE ADMINISTERED [None]
  - ANGIOPLASTY [None]
  - ERUCTATION [None]
  - DIPLOPIA [None]
  - HEADACHE [None]
  - DYSURIA [None]
  - LACRIMATION INCREASED [None]
  - GASTROOESOPHAGEAL REFLUX DISEASE [None]
  - DRUG INEFFECTIVE [None]
  - DYSPNOEA [None]
  - HAEMATURIA [None]
